FAERS Safety Report 17106295 (Version 2)
Quarter: 2019Q4

REPORT INFORMATION
  Report Type: Spontaneous
  Country: US (occurrence: US)
  Receive Date: 20191203
  Receipt Date: 20191205
  Transmission Date: 20200122
  Serious: Yes (Other)
  Sender: FDA-Public Use
  Company Number: US-SA-2019SA333755

PATIENT
  Age: 44 Year
  Sex: Female

DRUGS (1)
  1. ZANTAC 75 [Suspect]
     Active Substance: RANITIDINE HYDROCHLORIDE
     Dosage: UNK UNK, UNK (10-15 TIMES A WEEK)
     Route: 065
     Dates: start: 1992, end: 2019

REACTIONS (5)
  - Anxiety [Unknown]
  - Impaired quality of life [Unknown]
  - Emotional distress [Unknown]
  - Invasive ductal breast carcinoma [Unknown]
  - Pain [Unknown]

NARRATIVE: CASE EVENT DATE: 201908
